FAERS Safety Report 6532761-X (Version None)
Quarter: 2010Q1

REPORT INFORMATION
  Report Type: 
  Country: None (occurrence: None)
  Receive Date: 20100111
  Receipt Date: 20100106
  Transmission Date: 20100710
  Serious: Yes (Death)
  Sender: FDA-Public Use
  Company Number: PHEH2009US18513

PATIENT
  Sex: Female

DRUGS (2)
  1. EXJADE [Suspect]
     Indication: IRON OVERLOAD
     Dosage: 90 MG DAILY
     Route: 048
     Dates: start: 20091101, end: 20091201
  2. EXJADE [Suspect]
     Indication: MYELODYSPLASTIC SYNDROME

REACTIONS (3)
  - GASTRIC ULCER PERFORATION [None]
  - LAPAROTOMY [None]
  - POST PROCEDURAL COMPLICATION [None]
